FAERS Safety Report 4378476-8 (Version None)
Quarter: 2004Q2

REPORT INFORMATION
  Report Type: 
  Country: None (occurrence: None)
  Receive Date: 20040609
  Receipt Date: 20040524
  Transmission Date: 20050107
  Serious: Yes (Life-Threatening)
  Sender: FDA-Public Use
  Company Number: US_030292903

PATIENT
  Age: 62 Year
  Sex: Male
  Weight: 54 kg

DRUGS (7)
  1. GEMCITABINE HYDROCHLORIDE-IV (GEMCITABINE) [Suspect]
     Indication: NON-SMALL CELL LUNG CANCER
     Dosage: 800 MG/M2/OTHER
     Dates: start: 20021016, end: 20021113
  2. NAVELBINE [Concomitant]
  3. SELENCIA-R (VALPROATE SODIUM) [Concomitant]
  4. GASTROM (ECABET MONOSODIUM) [Concomitant]
  5. KYTRIL [Concomitant]
  6. GLYCEOL [Concomitant]
  7. DEXAMETHASONE [Concomitant]

REACTIONS (2)
  - HEADACHE [None]
  - INTERSTITIAL LUNG DISEASE [None]
